FAERS Safety Report 5636685-1 (Version None)
Quarter: 2008Q1

REPORT INFORMATION
  Report Type: 
  Country: None (occurrence: None)
  Receive Date: 20080220
  Receipt Date: 20080213
  Transmission Date: 20080703
  Serious: Yes (Hospitalization)
  Sender: FDA-Public Use
  Company Number: E2020-02277-SPO-DE

PATIENT
  Age: 59 Year
  Sex: Male
  Weight: 75 kg

DRUGS (6)
  1. ARICEPT [Suspect]
     Indication: VASCULAR DEMENTIA
     Dosage: 2 IN 1 D, ORAL
     Route: 048
     Dates: start: 20071201
  2. INSUMAN BASAL (INSULIN HUMAN INJECTION, ISOPHANE) [Concomitant]
  3. HUMALOG [Concomitant]
  4. SIMVASTATIN [Concomitant]
  5. NITRNDIPIN (NITRENDIPINE) [Concomitant]
  6. LORZAAR PLUS FORTE  (HYZAAR) [Concomitant]

REACTIONS (1)
  - HYPOGLYCAEMIC COMA [None]
